FAERS Safety Report 5654102-2 (Version None)
Quarter: 2008Q1

REPORT INFORMATION
  Report Type: 
  Country: None (occurrence: None)
  Receive Date: 20080306
  Receipt Date: 20080226
  Transmission Date: 20080703
  Serious: Yes (Other)
  Sender: FDA-Public Use
  Company Number: AU-PFIZER INC-2008018892

PATIENT
  Sex: Female

DRUGS (3)
  1. ZELDOX (CAPSULES) [Suspect]
     Indication: PSYCHOTIC DISORDER
  2. SEROQUEL [Suspect]
     Indication: PSYCHOTIC DISORDER
  3. LOVAN [Concomitant]

REACTIONS (10)
  - AGGRESSION [None]
  - DYSARTHRIA [None]
  - EMOTIONAL DISORDER [None]
  - HALLUCINATION, AUDITORY [None]
  - INSOMNIA [None]
  - PRESYNCOPE [None]
  - PSYCHIATRIC SYMPTOM [None]
  - PSYCHOTIC DISORDER [None]
  - RESTLESSNESS [None]
  - SPEECH DISORDER [None]
